FAERS Safety Report 9818768 (Version 3)
Quarter: 2014Q1

REPORT INFORMATION
  Report Type: Spontaneous
  Country: US (occurrence: US)
  Receive Date: 20140115
  Receipt Date: 20140307
  Transmission Date: 20141002
  Serious: Yes (Death, Life-Threatening, Hospitalization, Other)
  Sender: FDA-Public Use
  Company Number: US-009507513-1401USA004860

PATIENT
  Sex: Female
  Weight: 72.7 kg

DRUGS (2)
  1. JANUVIA [Suspect]
     Indication: TYPE 2 DIABETES MELLITUS
     Dosage: 100 MG, QD
     Route: 048
     Dates: start: 20070426, end: 20101201
  2. VICTOZA [Suspect]
     Indication: TYPE 2 DIABETES MELLITUS
     Dosage: 18 MICROGRAM, QD
     Dates: start: 20110822, end: 20110901

REACTIONS (24)
  - Pancreatic carcinoma [Fatal]
  - Hypovolaemia [Unknown]
  - Radiotherapy to pancreas [Unknown]
  - Metastases to liver [Unknown]
  - Metastases to lung [Unknown]
  - Abdominal lymphadenopathy [Unknown]
  - Pulmonary mass [Unknown]
  - Lymphadenopathy [Unknown]
  - Retroperitoneal lymphadenopathy [Unknown]
  - Dizziness [Unknown]
  - Haematuria [Unknown]
  - Tonsillectomy [Unknown]
  - Urinary incontinence [Unknown]
  - Urinary tract infection [Not Recovered/Not Resolved]
  - Gastrooesophageal reflux disease [Unknown]
  - Cough [Unknown]
  - Pulmonary congestion [Unknown]
  - Hepatic function abnormal [Unknown]
  - Blood pressure orthostatic decreased [Unknown]
  - Senile osteoporosis [Unknown]
  - Weight decreased [Unknown]
  - Upper-airway cough syndrome [Unknown]
  - Pain in extremity [Unknown]
  - Constipation [Recovering/Resolving]
